FAERS Safety Report 13491407 (Version 3)
Quarter: 2017Q2

REPORT INFORMATION
  Report Type: Report from Study
  Country: None (occurrence: CA)
  Receive Date: 20170427
  Receipt Date: 20170626
  Transmission Date: 20170830
  Serious: Yes (Hospitalization)
  Sender: FDA-Public Use
  Company Number: CA-ABBVIE-17K-028-1954624-00

PATIENT
  Sex: Male

DRUGS (2)
  1. HUMIRA [Suspect]
     Active Substance: ADALIMUMAB
     Route: 058
     Dates: start: 2017, end: 201703
  2. HUMIRA [Suspect]
     Active Substance: ADALIMUMAB
     Indication: PSORIATIC ARTHROPATHY
     Route: 058
     Dates: start: 20100521

REACTIONS (7)
  - Haemoglobin abnormal [Unknown]
  - Iron deficiency anaemia [Unknown]
  - Lower gastrointestinal haemorrhage [Not Recovered/Not Resolved]
  - Depression [Unknown]
  - Melaena [Unknown]
  - Impaired self-care [Unknown]
  - Phantom pain [Unknown]

NARRATIVE: CASE EVENT DATE: 2017
